FAERS Safety Report 9422738 (Version 1)
Quarter: 2013Q3

REPORT INFORMATION
  Report Type: Spontaneous
  Country: US (occurrence: US)
  Receive Date: 20130726
  Receipt Date: 20130726
  Transmission Date: 20140515
  Serious: No
  Sender: FDA-Public Use
  Company Number: US-MYLANLABS-2012S1023690

PATIENT
  Sex: Female

DRUGS (6)
  1. TRAMADOL HYDROCHLORIDE TABLETS [Suspect]
     Indication: WRIST FRACTURE
     Route: 048
     Dates: start: 201208
  2. TRAMADOL HYDROCHLORIDE TABLETS [Suspect]
     Indication: LOWER LIMB FRACTURE
     Route: 048
     Dates: start: 201208
  3. XANAX [Concomitant]
     Indication: ANXIETY
     Route: 048
  4. REMERON [Concomitant]
     Indication: INSOMNIA
     Route: 048
  5. LEXAPRO [Concomitant]
     Indication: ANXIETY
     Route: 048
     Dates: end: 20121110
  6. ZOLOFT [Concomitant]
     Indication: DEPRESSION
     Route: 048
     Dates: start: 20121110

REACTIONS (4)
  - Confusional state [Not Recovered/Not Resolved]
  - Restlessness [Not Recovered/Not Resolved]
  - Feeling abnormal [Not Recovered/Not Resolved]
  - Nausea [Not Recovered/Not Resolved]
